FAERS Safety Report 15081856 (Version 1)
Quarter: 2018Q2

REPORT INFORMATION
  Report Type: Spontaneous
  Country: US (occurrence: US)
  Receive Date: 20180628
  Receipt Date: 20180628
  Transmission Date: 20180711
  Serious: Yes (Other)
  Sender: FDA-Public Use
  Company Number: US-LUPIN HEALTHCARE (UK) LIMITED-2018-04613

PATIENT
  Age: 24 Year
  Sex: Female
  Weight: 49.89 kg

DRUGS (1)
  1. LEVONORGESTREL AND ETHINYL ESTRADIOL TABLETS USP 0.1 MG/0.02 MG [Suspect]
     Active Substance: ETHINYL ESTRADIOL\LEVONORGESTREL
     Indication: ORAL CONTRACEPTION
     Dosage: 1 DOSAGE FORM (0.1 MG/0.02 MG) QD
     Route: 048
     Dates: start: 20180427, end: 20180613

REACTIONS (8)
  - Anxiety [Recovering/Resolving]
  - Mood swings [Recovering/Resolving]
  - Muscle spasms [Recovering/Resolving]
  - Depression [Recovering/Resolving]
  - Lethargy [Recovering/Resolving]
  - Suicidal ideation [Recovering/Resolving]
  - Nausea [Recovering/Resolving]
  - Feeling of despair [Recovering/Resolving]

NARRATIVE: CASE EVENT DATE: 20180610
